FAERS Safety Report 19706159 (Version 1)
Quarter: 2021Q3

REPORT INFORMATION
  Report Type: Spontaneous
  Country: DE (occurrence: DE)
  Receive Date: 20210817
  Receipt Date: 20210817
  Transmission Date: 20211014
  Serious: Yes (Hospitalization, Other)
  Sender: FDA-Public Use
  Company Number: DE-TEVA-2021-DE-1941199

PATIENT
  Age: 56 Year
  Sex: Male
  Weight: 85 kg

DRUGS (2)
  1. METAMIZOL [Concomitant]
     Active Substance: METAMIZOLE SODIUM
     Dosage: IF NECESSARY
  2. IBUPROFEN. [Suspect]
     Active Substance: IBUPROFEN
     Dosage: 1800 MILLIGRAM DAILY; 600 MG, 1?1?1?0
     Route: 065

REACTIONS (6)
  - Pain in extremity [Unknown]
  - Tachypnoea [Unknown]
  - General physical health deterioration [Unknown]
  - Tachycardia [Unknown]
  - Weight increased [Unknown]
  - Atrial fibrillation [Unknown]
